FAERS Safety Report 18386868 (Version 1)
Quarter: 2020Q4

REPORT INFORMATION
  Report Type: Spontaneous
  Country: FR (occurrence: FR)
  Receive Date: 20201015
  Receipt Date: 20201015
  Transmission Date: 20210114
  Serious: Yes (Other)
  Sender: FDA-Public Use
  Company Number: FR-MYLANLABS-2020M1085999

PATIENT
  Age: 60 Year
  Sex: Male
  Weight: 57.5 kg

DRUGS (8)
  1. RIVOTRIL [Suspect]
     Active Substance: CLONAZEPAM
     Indication: ENDOTRACHEAL INTUBATION
     Dosage: 2 MILLIGRAM, TOTAL
     Route: 065
     Dates: start: 20200915, end: 20200915
  2. CISATRACURIUM MYLAN [Suspect]
     Active Substance: CISATRACURIUM
     Indication: PRODUCT USED FOR UNKNOWN INDICATION
     Dosage: 10 MILLIGRAM, TOTAL
     Route: 042
     Dates: start: 20200915, end: 20200915
  3. PRODILANTIN [Suspect]
     Active Substance: FOSPHENYTOIN SODIUM
     Indication: TONIC CLONIC MOVEMENTS
     Dosage: 1200 MILLIGRAM, TOTAL
     Route: 042
     Dates: start: 20200915, end: 20200915
  4. ROCURONIUM [Suspect]
     Active Substance: ROCURONIUM BROMIDE
     Indication: ENDOTRACHEAL INTUBATION
     Dosage: 50 MILLIGRAM, TOTAL
     Route: 042
     Dates: start: 20200915, end: 20200915
  5. SUFENTANIL MYLAN [Suspect]
     Active Substance: SUFENTANIL
     Indication: SEDATION
     Dosage: 20 MICROGRAM, QH
     Route: 042
     Dates: start: 20200915, end: 20200916
  6. MIDAZOLAM MYLAN [Suspect]
     Active Substance: MIDAZOLAM HYDROCHLORIDE
     Indication: SEDATION
     Dosage: 5 MILLIGRAM, QH
     Route: 042
     Dates: start: 20200915, end: 20200916
  7. ETOMIDATE LIPURO [Suspect]
     Active Substance: ETOMIDATE
     Indication: ENDOTRACHEAL INTUBATION
     Dosage: 35 MILLIGRAM, TOTAL
     Route: 042
     Dates: start: 20200915, end: 20200915
  8. NORADRENALINE RENAUDIN [Suspect]
     Active Substance: NOREPINEPHRINE BITARTRATE
     Indication: HAEMODYNAMIC INSTABILITY
     Dosage: 1.5 MILLIGRAM, QH
     Route: 042
     Dates: start: 20200915, end: 20200916

REACTIONS (4)
  - Electrocardiogram QRS complex prolonged [Recovered/Resolved]
  - Defect conduction intraventricular [Recovered/Resolved]
  - Electrocardiogram P wave abnormal [Recovered/Resolved]
  - Conduction disorder [Recovered/Resolved]

NARRATIVE: CASE EVENT DATE: 20200916
